FAERS Safety Report 8503095-9 (Version None)
Quarter: 2012Q3

REPORT INFORMATION
  Report Type: 
  Country: None (occurrence: None)
  Receive Date: 20120711
  Receipt Date: 20120629
  Transmission Date: 20120928
  Serious: Yes (Hospitalization, Other)
  Sender: FDA-Public Use
  Company Number: US-ELI_LILLY_AND_COMPANY-US201204010074

PATIENT
  Sex: Female

DRUGS (11)
  1. FORTEO [Suspect]
     Dosage: 20 UG, QD
  2. PRILOSEC [Concomitant]
  3. EYE DROPS [Concomitant]
  4. PERCOCET [Concomitant]
  5. FUROSEMIDE [Concomitant]
  6. FORTEO [Suspect]
     Indication: OSTEOPOROSIS
     Dosage: 20 UG, QD
  7. CLONAZEPAM [Concomitant]
  8. SIMVASTATIN [Concomitant]
  9. CIPROFLOXACIN HCL [Concomitant]
  10. METOPROLOL SUCCINATE [Concomitant]
  11. POTASSIUM CHLORIDE [Concomitant]

REACTIONS (5)
  - ASTHENIA [None]
  - POST PROCEDURAL COMPLICATION [None]
  - HEPATIC INFECTION [None]
  - BILE DUCT OBSTRUCTION [None]
  - BILE DUCT STENOSIS [None]
